FAERS Safety Report 18137020 (Version 1)
Quarter: 2020Q3

REPORT INFORMATION
  Report Type: Spontaneous
  Country: CN (occurrence: CN)
  Receive Date: 20200812
  Receipt Date: 20200812
  Transmission Date: 20201103
  Serious: Yes (Other)
  Sender: FDA-Public Use
  Company Number: CN-ROCHE-2657505

PATIENT
  Age: 57 Year
  Sex: Female

DRUGS (4)
  1. IRINOTECAN [Concomitant]
     Active Substance: IRINOTECAN
     Indication: ADENOCARCINOMA OF COLON
     Dosage: DATE OF TREATMENT: 24/DEC/2019, 21/JAN/2020, 08/FEB/2020, 18/MAR/2020, 07/APR/2020, 16/MAY/2020
  2. AVASTIN [Suspect]
     Active Substance: BEVACIZUMAB
     Indication: ADENOCARCINOMA OF COLON
     Dosage: DATE OF TREATMENT: 21/JAN/2020, 08/FEB/2020, 18/MAR/2020,16/MAY/2020
     Route: 065
     Dates: start: 20191224
  3. CALCIUM FOLINATE [Concomitant]
     Active Substance: LEUCOVORIN CALCIUM
     Indication: ADENOCARCINOMA OF COLON
     Dosage: DATE OF TREATMENT: 24/DEC/2019, 21/JAN/2020, 08/FEB/2020, 18/MAR/2020, 07/APR/2020, 16/MAY/2020
     Dates: start: 20191210
  4. FLUOROURACIL. [Concomitant]
     Active Substance: FLUOROURACIL
     Indication: ADENOCARCINOMA OF COLON
     Dosage: DATE OF TREATMENT: 24/DEC/2019, 21/JAN/2020, 08/FEB/2020, 18/MAR/2020, 07/APR/2020, 16/MAY/2020
     Dates: start: 20191210

REACTIONS (4)
  - Myelosuppression [Unknown]
  - Platelet count decreased [Unknown]
  - Diarrhoea [Unknown]
  - Neutrophil count decreased [Unknown]
